FAERS Safety Report 14235292 (Version 1)
Quarter: 2017Q4

REPORT INFORMATION
  Report Type: Spontaneous
  Country: US (occurrence: US)
  Receive Date: 20171129
  Receipt Date: 20171129
  Transmission Date: 20180321
  Serious: Yes (Life-Threatening, Hospitalization)
  Sender: FDA-Public Use
  Company Number: US-LEADIANT BIOSCIENCES INC-2017STPI000287

PATIENT
  Sex: Male

DRUGS (1)
  1. MATULANE [Suspect]
     Active Substance: PROCARBAZINE HYDROCHLORIDE
     Indication: NEOPLASM MALIGNANT
     Dosage: 150 MG, QD, DAYS 8-21 EVERY 8 WEEKS
     Route: 048
     Dates: start: 20160829

REACTIONS (2)
  - Neutropenia [Not Recovered/Not Resolved]
  - Urticaria [Not Recovered/Not Resolved]
